FAERS Safety Report 5206349-7 (Version None)
Quarter: 2007Q1

REPORT INFORMATION
  Report Type: 
  Country: None (occurrence: None)
  Receive Date: 20070111
  Receipt Date: 20070102
  Transmission Date: 20070707
  Serious: Yes (Other)
  Sender: FDA-Public Use
  Company Number: US-PFIZER INC-2007001391

PATIENT
  Sex: Male
  Weight: 104.3 kg

DRUGS (3)
  1. GABAPENTIN [Suspect]
     Indication: PAIN IN EXTREMITY
  2. GABAPENTIN [Suspect]
  3. ALL OTHER THERAPEUTIC PRODUCTS [Concomitant]

REACTIONS (3)
  - BLOOD GLUCOSE INCREASED [None]
  - DRUG INEFFECTIVE [None]
  - RENAL IMPAIRMENT [None]
